FAERS Safety Report 5473749-X (Version None)
Quarter: 2007Q4

REPORT INFORMATION
  Report Type: 
  Country: None (occurrence: None)
  Receive Date: 20071001
  Receipt Date: 20040512
  Transmission Date: 20080405
  Serious: Yes (Disabling)
  Sender: FDA-Public Use
  Company Number: NO-PFIZER INC-2007057242

PATIENT

DRUGS (1)
  1. PROSTIN VR SOLUTION, STERILE [Suspect]

REACTIONS (2)
  - ACCIDENTAL OVERDOSE [None]
  - BRAIN DAMAGE [None]
